FAERS Safety Report 25885071 (Version 1)
Quarter: 2025Q4

REPORT INFORMATION
  Report Type: Spontaneous
  Country: JP (occurrence: JP)
  Receive Date: 20251006
  Receipt Date: 20251006
  Transmission Date: 20260117
  Serious: Yes (Other)
  Sender: BRISTOL-MYERS SQUIBB COMPANY
  Company Number: JP-BRISTOL-MYERS SQUIBB COMPANY-2025-134651

PATIENT

DRUGS (2)
  1. BARACLUDE [Suspect]
     Active Substance: ENTECAVIR
     Indication: Hepatitis B
  2. INTERFERON [Concomitant]
     Active Substance: INTERFERON
     Indication: Hepatitis B

REACTIONS (3)
  - Prescribed overdose [Unknown]
  - Renal cancer [Unknown]
  - Product communication issue [Unknown]
